FAERS Safety Report 19970269 (Version 2)
Quarter: 2021Q4

REPORT INFORMATION
  Report Type: Spontaneous
  Country: PL (occurrence: PL)
  Receive Date: 20211020
  Receipt Date: 20211231
  Transmission Date: 20220304
  Serious: Yes (Hospitalization, Other)
  Sender: FDA-Public Use
  Company Number: PL-URPL-DML-MLP.4401.1.650.2021

PATIENT
  Age: 44 Year
  Sex: Female
  Weight: 59 kg

DRUGS (2)
  1. PREGABALIN [Suspect]
     Active Substance: PREGABALIN
     Indication: Product used for unknown indication
     Dosage: UNK
     Route: 048
     Dates: start: 20210105, end: 20210105
  2. ALPRAZOLAM [Suspect]
     Active Substance: ALPRAZOLAM
     Indication: Product used for unknown indication
     Dosage: UNK
     Route: 048
     Dates: start: 20210105, end: 20210105

REACTIONS (2)
  - Loss of consciousness [Unknown]
  - Suicide attempt [Unknown]
